FAERS Safety Report 11152694 (Version 2)
Quarter: 2017Q1

REPORT INFORMATION
  Report Type: Spontaneous
  Country: US (occurrence: US)
  Receive Date: 20150601
  Receipt Date: 20170222
  Transmission Date: 20170428
  Serious: Yes (Other)
  Sender: FDA-Public Use
  Company Number: US-PURDUE-USA-2015-0123816

PATIENT
  Sex: Female

DRUGS (1)
  1. HYDROCODONE BITARTRATE (SIMILAR TO NDA 206627) [Suspect]
     Active Substance: HYDROCODONE BITARTRATE
     Indication: PAIN
     Dosage: UNK
     Route: 048

REACTIONS (5)
  - Spinal fusion surgery [Unknown]
  - Gait disturbance [Unknown]
  - Post laminectomy syndrome [Unknown]
  - Spinal decompression [Unknown]
  - Pain [Unknown]

NARRATIVE: CASE EVENT DATE: 2014
